FAERS Safety Report 7237556-X (Version None)
Quarter: 2011Q1

REPORT INFORMATION
  Report Type: 
  Country: None (occurrence: None)
  Receive Date: 20110121
  Receipt Date: 20110114
  Transmission Date: 20110831
  Serious: Yes (Death, Other)
  Sender: FDA-Public Use
  Company Number: US-AMGEN AB-US343335

PATIENT

DRUGS (2)
  1. NPLATE [Suspect]
     Indication: IDIOPATHIC THROMBOCYTOPENIC PURPURA
     Dosage: UNK UNK, UNK
     Dates: start: 20090330
  2. NPLATE [Suspect]

REACTIONS (3)
  - DRUG INEFFECTIVE [None]
  - HYPERTENSION [None]
  - UROSEPSIS [None]
